FAERS Safety Report 12708101 (Version 1)
Quarter: 2016Q3

REPORT INFORMATION
  Report Type: Spontaneous
  Country: FI (occurrence: FI)
  Receive Date: 20160901
  Receipt Date: 20160901
  Transmission Date: 20161109
  Serious: Yes (Other)
  Sender: FDA-Public Use
  Company Number: FI-009507513-1608FIN010475

PATIENT
  Age: 62 Year
  Sex: Female
  Weight: 105 kg

DRUGS (18)
  1. PROPOFOL. [Concomitant]
     Active Substance: PROPOFOL
     Indication: MAINTENANCE OF ANAESTHESIA
     Dosage: 20 MG/ML, UNK
     Route: 042
     Dates: start: 20160811, end: 20160811
  2. INDOCYANINE GREEN (ICG) PULSION [Concomitant]
     Indication: DIAGNOSTIC PROCEDURE
     Dosage: 5 MG/ML, UNK
     Route: 030
     Dates: start: 20160811, end: 20160811
  3. CAPRILON [Concomitant]
     Dosage: 100 MG,/ ML UNK
     Route: 042
     Dates: start: 20160811, end: 20160811
  4. ZINACEF [Concomitant]
     Active Substance: CEFUROXIME SODIUM
     Dosage: 1.5 G, UNK
     Route: 042
  5. FENTANYL. [Concomitant]
     Active Substance: FENTANYL
     Indication: PAIN
     Dosage: 50 UG/ML, UNK
     Route: 042
     Dates: start: 20160811, end: 20160811
  6. REMIFENTANIL HYDROCHLORIDE [Concomitant]
     Active Substance: REMIFENTANIL HYDROCHLORIDE
     Indication: PAIN
     Dosage: UNK
     Route: 042
     Dates: start: 20160811, end: 20160811
  7. PARACETAMOL [Concomitant]
     Active Substance: ACETAMINOPHEN
     Indication: PAIN
     Dosage: 100 MG/ML UNK
     Route: 042
     Dates: start: 20160811, end: 20160811
  8. PROPOFOL. [Concomitant]
     Active Substance: PROPOFOL
     Indication: INDUCTION OF ANAESTHESIA
     Dosage: 10 MG/ML, UNK
     Route: 042
     Dates: start: 20160811, end: 20160811
  9. FENTANYL. [Concomitant]
     Active Substance: FENTANYL
     Dosage: 50 UG/ML, UNK
     Route: 042
     Dates: start: 20160811, end: 20160811
  10. ROBINUL [Concomitant]
     Active Substance: GLYCOPYRROLATE
     Dosage: 0.2 MG/ML UNK
     Route: 042
     Dates: start: 20160811, end: 20160811
  11. MIDAZOLAM [Concomitant]
     Active Substance: MIDAZOLAM\MIDAZOLAM HYDROCHLORIDE
     Dosage: 1 MG/ML, UNK
     Route: 042
     Dates: start: 20160811, end: 20160811
  12. SOLU-CORTEF [Concomitant]
     Active Substance: HYDROCORTISONE SODIUM SUCCINATE
     Dosage: 100 MG, UNK
     Route: 042
     Dates: start: 20160811, end: 20160811
  13. ESMERON [Suspect]
     Active Substance: ROCURONIUM BROMIDE
     Indication: HYPOTONIA
     Dosage: 10 MG/ML  UNK
     Route: 042
     Dates: start: 20160811, end: 20160811
  14. ALBETOL [Concomitant]
     Indication: BLOOD PRESSURE MANAGEMENT
     Dosage: 10 MG/ML, UNK
     Route: 042
     Dates: start: 20160811, end: 20160811
  15. OXANEST [Concomitant]
     Active Substance: OXYCODONE HYDROCHLORIDE
     Dosage: 10 MG/ML, UNK
     Route: 042
     Dates: start: 20160811, end: 20160811
  16. BRIDION [Suspect]
     Active Substance: SUGAMMADEX
     Indication: NEUROMUSCULAR BLOCKADE REVERSAL
     Dosage: 100 MG/ML UNK
     Route: 042
     Dates: start: 20160811, end: 20160811
  17. ULTIVA [Concomitant]
     Active Substance: REMIFENTANIL HYDROCHLORIDE
     Dosage: 50 UG/ML UNK
     Route: 042
     Dates: start: 20160811, end: 20160811
  18. ULTIVA [Concomitant]
     Active Substance: REMIFENTANIL HYDROCHLORIDE
     Dosage: 50 UG/ML, UNK
     Route: 042
     Dates: start: 20160811, end: 20160811

REACTIONS (12)
  - Underdose [Recovered/Resolved]
  - Dyskinesia [Recovered/Resolved]
  - Hypotonia [Recovered/Resolved]
  - Feeling of relaxation [Recovered/Resolved]
  - Tremor [Recovered/Resolved]
  - Pain [Recovered/Resolved]
  - Pharyngeal oedema [Recovered/Resolved]
  - Aphasia [Recovered/Resolved]
  - Hypertension [Recovered/Resolved]
  - Respiratory arrest [Recovered/Resolved]
  - Drug effect incomplete [Recovered/Resolved]
  - Oxygen saturation decreased [Recovered/Resolved]

NARRATIVE: CASE EVENT DATE: 20160811
